FAERS Safety Report 14077517 (Version 1)
Quarter: 2017Q4

REPORT INFORMATION
  Report Type: Spontaneous
  Country: CA (occurrence: CA)
  Receive Date: 20171012
  Receipt Date: 20171012
  Transmission Date: 20180321
  Serious: Yes (Disabling)
  Sender: FDA-Public Use
  Company Number: CA-AUROBINDO-AUR-APL-2017-41453

PATIENT
  Age: 32 Year
  Sex: Female

DRUGS (1)
  1. AURO-VALACICLOVIR TABLET [Suspect]
     Active Substance: VALACYCLOVIR HYDROCHLORIDE
     Indication: INFECTION
     Route: 048

REACTIONS (2)
  - Drug ineffective [Recovering/Resolving]
  - Herpes virus infection [Recovering/Resolving]
